FAERS Safety Report 7127954-7 (Version None)
Quarter: 2010Q4

REPORT INFORMATION
  Report Type: 
  Country: None (occurrence: None)
  Receive Date: 20101112
  Receipt Date: 20101103
  Transmission Date: 20110411
  Serious: Yes (Hospitalization, Other)
  Sender: FDA-Public Use
  Company Number: 2010SP026407

PATIENT
  Age: 29 Year
  Sex: Female
  Weight: 97.5234 kg

DRUGS (2)
  1. NUVARING [Suspect]
     Indication: CONTRACEPTION
     Dates: start: 20090201, end: 20090401
  2. NUVARING [Suspect]
     Indication: CONTRACEPTION
     Dates: start: 20060101

REACTIONS (7)
  - DEEP VEIN THROMBOSIS [None]
  - OVARIAN CYST [None]
  - OVARIAN NEOPLASM [None]
  - PANIC ATTACK [None]
  - PULMONARY EMBOLISM [None]
  - SIMPLEX VIRUS TEST POSITIVE [None]
  - TERATOMA [None]
